FAERS Safety Report 9850209 (Version 2)
Quarter: 2014Q1

REPORT INFORMATION
  Report Type: Spontaneous
  Country: IT (occurrence: IT)
  Receive Date: 20140128
  Receipt Date: 20140327
  Transmission Date: 20141002
  Serious: Yes (Hospitalization)
  Sender: FDA-Public Use
  Company Number: IT-ACTAVIS-2014-00754

PATIENT
  Age: 79 Year
  Sex: Female

DRUGS (3)
  1. IBUPROFEN [Suspect]
     Indication: PRODUCT USED FOR UNKNOWN INDICATION
     Dosage: 800 MG/DIE, QD
     Route: 048
  2. DIFMETRE [Suspect]
     Indication: PRODUCT USED FOR UNKNOWN INDICATION
     Dosage: 1 POSOLOGICAL/DIE
     Route: 065
  3. RAMIPRIL + HIDROCLOROTIAZIDA [Concomitant]
     Dosage: 1 POSOLOGICAL UNIT, UNK
     Route: 048

REACTIONS (3)
  - Renal failure acute [Recovering/Resolving]
  - Intentional drug misuse [Recovering/Resolving]
  - Drug abuse [Recovering/Resolving]
